FAERS Safety Report 8473904-0 (Version None)
Quarter: 2012Q2

REPORT INFORMATION
  Report Type: 
  Country: None (occurrence: None)
  Receive Date: 20120628
  Receipt Date: 20120125
  Transmission Date: 20120825
  Serious: Yes (Death)
  Sender: FDA-Public Use
  Company Number: US-MYLANLABS-2012S1001744

PATIENT
  Age: 49 Year
  Sex: Male

DRUGS (10)
  1. LOPRESSOR [Concomitant]
     Indication: HYPERTENSION
     Route: 048
  2. CLOZAPINE [Suspect]
     Indication: PSYCHOTIC DISORDER
     Route: 048
     Dates: end: 20120119
  3. HYDROCHLOROTHIAZIDE [Concomitant]
     Indication: HYPERTENSION
     Route: 048
  4. CLOZAPINE [Suspect]
     Indication: SCHIZOPHRENIA
     Route: 048
     Dates: end: 20120119
  5. DDAVP [Concomitant]
     Indication: ENURESIS
     Route: 048
  6. KLONOPIN [Concomitant]
     Indication: ANXIETY
     Route: 048
  7. VASOTEC [Concomitant]
     Indication: HYPERTENSION
     Route: 048
  8. PROZAC [Concomitant]
     Indication: OBSESSIVE-COMPULSIVE DISORDER
     Route: 048
  9. FLOVENT [Concomitant]
     Dosage: 2 PUFFS BID
     Route: 055
  10. TRICOR [Concomitant]
     Indication: HYPERLIPIDAEMIA
     Route: 048

REACTIONS (2)
  - BRAIN CANCER METASTATIC [None]
  - LUNG NEOPLASM MALIGNANT [None]
